FAERS Safety Report 19275930 (Version 1)
Quarter: 2021Q2

REPORT INFORMATION
  Report Type: Spontaneous
  Country: FR (occurrence: FR)
  Receive Date: 20210519
  Receipt Date: 20210519
  Transmission Date: 20210717
  Serious: Yes (Death, Other)
  Sender: FDA-Public Use
  Company Number: FR-ORGANON-O2105FRA000895

PATIENT
  Sex: Male

DRUGS (1)
  1. ZOCOR [Suspect]
     Active Substance: SIMVASTATIN
     Dosage: UNK
     Route: 048
     Dates: start: 1985

REACTIONS (4)
  - Death [Fatal]
  - Arteriosclerosis [Unknown]
  - Coronary artery bypass [Unknown]
  - COVID-19 [Unknown]

NARRATIVE: CASE EVENT DATE: 20210311
